FAERS Safety Report 13544492 (Version 3)
Quarter: 2017Q2

REPORT INFORMATION
  Report Type: Report from Study
  Country: RS (occurrence: RS)
  Receive Date: 20170515
  Receipt Date: 20170602
  Transmission Date: 20170830
  Serious: Yes (Hospitalization)
  Sender: FDA-Public Use
  Company Number: RS-ROCHE-1934060

PATIENT
  Age: 57 Year
  Sex: Female
  Weight: 68 kg

DRUGS (16)
  1. RANITIDINE. [Concomitant]
     Active Substance: RANITIDINE
     Route: 042
     Dates: start: 20170509, end: 20170519
  2. FILGRASTIM [Concomitant]
     Active Substance: FILGRASTIM
     Indication: PANCYTOPENIA
     Route: 058
     Dates: start: 20170426, end: 20170426
  3. NOLPAZA [Concomitant]
     Active Substance: PANTOPRAZOLE SODIUM
     Indication: NAUSEA
     Route: 048
     Dates: start: 20170426, end: 20170508
  4. RASETRON [Concomitant]
     Indication: NAUSEA
     Route: 048
     Dates: start: 20170412, end: 20170508
  5. RANITIDINE. [Concomitant]
     Active Substance: RANITIDINE
     Route: 042
     Dates: start: 20170412, end: 20170412
  6. RANITIDINE. [Concomitant]
     Active Substance: RANITIDINE
     Route: 042
     Dates: start: 20170425, end: 20170426
  7. KLOMETOL [Concomitant]
     Indication: NAUSEA
     Route: 042
     Dates: start: 20170412, end: 20170412
  8. ORVAGIL [Concomitant]
     Active Substance: METRONIDAZOLE
     Indication: PANCYTOPENIA
     Route: 048
     Dates: start: 20170426, end: 20170502
  9. PARACETAMOL [Concomitant]
     Active Substance: ACETAMINOPHEN
     Indication: ABDOMINAL PAIN
     Route: 042
     Dates: start: 20170509, end: 20170519
  10. KLOMETOL [Concomitant]
     Route: 042
     Dates: start: 20170425, end: 20170426
  11. ONDANSETRON [Concomitant]
     Active Substance: ONDANSETRON
     Indication: NAUSEA
     Route: 042
     Dates: start: 20170509, end: 20170519
  12. ETOPOSIDE. [Suspect]
     Active Substance: ETOPOSIDE
     Indication: SMALL CELL LUNG CANCER EXTENSIVE STAGE
     Dosage: MOST RECENT DOSE: 175 MG ON 07/APR/2017 AT 09:00.
     Route: 042
     Dates: start: 20170405
  13. CARBOPLATIN. [Suspect]
     Active Substance: CARBOPLATIN
     Indication: SMALL CELL LUNG CANCER EXTENSIVE STAGE
     Dosage: MOST RECENT DOSE: 590 MG ON 05/APR/2017 AT 11:00?TO ACHIEVE AN INITIAL TARGET AREA UNDER THE CONCENT
     Route: 042
     Dates: start: 20170405
  14. RANITIDINE. [Concomitant]
     Active Substance: RANITIDINE
     Indication: NAUSEA
     Route: 048
     Dates: start: 20170412, end: 20170425
  15. PANCEF (CEFIXIME) [Concomitant]
     Indication: PANCYTOPENIA
     Route: 048
     Dates: start: 20170426, end: 20170502
  16. ATEZOLIZUMAB [Suspect]
     Active Substance: ATEZOLIZUMAB
     Indication: SMALL CELL LUNG CANCER EXTENSIVE STAGE
     Dosage: MOST RECENT DOSE: 05/APR/2017 AT 09:15
     Route: 042
     Dates: start: 20170405

REACTIONS (1)
  - Respiratory failure [Not Recovered/Not Resolved]

NARRATIVE: CASE EVENT DATE: 20170509
